FAERS Safety Report 20635747 (Version 2)
Quarter: 2022Q1

REPORT INFORMATION
  Report Type: Spontaneous
  Country: US (occurrence: US)
  Receive Date: 20220325
  Receipt Date: 20220330
  Transmission Date: 20220423
  Serious: Yes (Other)
  Sender: FDA-Public Use
  Company Number: US-ABBVIE-22K-163-4331632-00

PATIENT
  Sex: Male

DRUGS (5)
  1. ANDROGEL [Suspect]
     Active Substance: TESTOSTERONE
     Indication: Product used for unknown indication
     Route: 061
  2. ANDROGEL [Suspect]
     Active Substance: TESTOSTERONE
     Route: 061
     Dates: start: 2021
  3. COVID-19 VACCINE [Concomitant]
     Indication: COVID-19 immunisation
     Route: 030
  4. COVID-19 VACCINE [Concomitant]
     Route: 030
  5. COVID-19 VACCINE [Concomitant]
     Route: 030

REACTIONS (10)
  - Surgery [Recovering/Resolving]
  - Tooth infection [Recovering/Resolving]
  - Haemorrhage [Recovered/Resolved]
  - Oxygen saturation decreased [Recovered/Resolved]
  - Sinusitis [Recovering/Resolving]
  - COVID-19 [Recovered/Resolved]
  - Decreased appetite [Recovered/Resolved]
  - Fatigue [Recovered/Resolved]
  - Taste disorder [Recovered/Resolved]
  - Therapeutic product effect incomplete [Recovered/Resolved]

NARRATIVE: CASE EVENT DATE: 20190101
